FAERS Safety Report 10655207 (Version 1)
Quarter: 2014Q4

REPORT INFORMATION
  Report Type: Spontaneous
  Country: GB (occurrence: GB)
  Receive Date: 20141216
  Receipt Date: 20141216
  Transmission Date: 20150529
  Serious: Yes (Death, Hospitalization, Other)
  Sender: FDA-Public Use
  Company Number: GB-ACTAVIS-2014-26597

PATIENT
  Sex: Female

DRUGS (4)
  1. DUROGESIC [Interacting]
     Active Substance: FENTANYL
     Indication: ARTHRALGIA
  2. DUROGESIC [Interacting]
     Active Substance: FENTANYL
     Indication: ARTHRALGIA
     Dosage: 100 ?G, Q1H
     Route: 062
     Dates: start: 20050621, end: 20050624
  3. ZYDOL /00599202/ [Interacting]
     Active Substance: TRAMADOL HYDROCHLORIDE
     Indication: ARTHRALGIA
     Dosage: 300 MG, DAILY
     Route: 048
     Dates: start: 20050503, end: 20050624
  4. TRAMADOL [Suspect]
     Active Substance: TRAMADOL
     Indication: ARTHRALGIA
     Dosage: 50 MG, TID
     Route: 048
     Dates: start: 20050503, end: 20050624

REACTIONS (4)
  - Overdose [Fatal]
  - Drug interaction [Fatal]
  - Respiratory depression [Fatal]
  - Drug administration error [Fatal]

NARRATIVE: CASE EVENT DATE: 200506
